FAERS Safety Report 20340880 (Version 1)
Quarter: 2022Q1

REPORT INFORMATION
  Report Type: Report from Study
  Country: TW (occurrence: TW)
  Receive Date: 20220117
  Receipt Date: 20220117
  Transmission Date: 20220424
  Serious: Yes (Life-Threatening, Other)
  Sender: FDA-Public Use
  Company Number: TW-PFIZER INC-202200046796

PATIENT
  Age: 61 Year

DRUGS (9)
  1. METHOTREXATE [Suspect]
     Active Substance: METHOTREXATE
     Indication: Ocular lymphoma
     Dosage: 2X/WEEK (INTRAVITREAL)
  2. METHOTREXATE [Suspect]
     Active Substance: METHOTREXATE
     Indication: Rash
     Dosage: WEEKLY (INTRAVITREAL)
  3. METHOTREXATE [Suspect]
     Active Substance: METHOTREXATE
     Dosage: EVERY 2 WEEKS (INTRAVITREAL)
  4. METHOTREXATE [Suspect]
     Active Substance: METHOTREXATE
     Dosage: MONTHLY (INTRAVITREAL)
  5. METHOTREXATE [Suspect]
     Active Substance: METHOTREXATE
     Dosage: 6000 MG/M2 - 4000 MG/M2
  6. METHOTREXATE [Suspect]
     Active Substance: METHOTREXATE
     Dosage: 6000 MG/M2
  7. CARMUSTINE [Concomitant]
     Active Substance: CARMUSTINE
     Dosage: UNK
  8. CYTARABINE [Concomitant]
     Active Substance: CYTARABINE
     Dosage: UNK
  9. METHYLPREDNISOLONE [Concomitant]
     Active Substance: METHYLPREDNISOLONE
     Dosage: UNK

REACTIONS (1)
  - Punctate keratitis [Unknown]
